FAERS Safety Report 6076787-1 (Version None)
Quarter: 2009Q1

REPORT INFORMATION
  Report Type: 
  Country: None (occurrence: None)
  Receive Date: 20090213
  Receipt Date: 20090206
  Transmission Date: 20090719
  Serious: Yes (Hospitalization)
  Sender: FDA-Public Use
  Company Number: US-BIOGENIDEC-2008BI014750

PATIENT
  Age: 58 Year
  Sex: Female
  Weight: 90 kg

DRUGS (3)
  1. AVONEX [Suspect]
     Indication: MULTIPLE SCLEROSIS
     Route: 030
     Dates: start: 19980723
  2. AVONEX [Suspect]
     Route: 030
  3. PREMARIN [Concomitant]
     Indication: DRUG USE FOR UNKNOWN INDICATION

REACTIONS (10)
  - ABASIA [None]
  - ABDOMINAL PAIN [None]
  - ARTERIOSCLEROSIS [None]
  - ATELECTASIS [None]
  - DEEP VEIN THROMBOSIS [None]
  - DYSPHONIA [None]
  - FLANK PAIN [None]
  - HYDROCHOLECYSTIS [None]
  - HYSTERECTOMY [None]
  - PLEURAL EFFUSION [None]
